FAERS Safety Report 8153238-4 (Version None)
Quarter: 2012Q1

REPORT INFORMATION
  Report Type: 
  Country: None (occurrence: None)
  Receive Date: 20120221
  Receipt Date: 20120215
  Transmission Date: 20120608
  Serious: Yes (Hospitalization)
  Sender: FDA-Public Use
  Company Number: US-GILEAD-2011-0048330

PATIENT
  Sex: Female

DRUGS (3)
  1. LETAIRIS [Suspect]
     Indication: PULMONARY HYPERTENSION
     Dosage: 5 MG, UNK
     Route: 048
     Dates: start: 20111201
  2. LETAIRIS [Suspect]
     Indication: WEIGHT LOSS DIET
  3. LETAIRIS [Suspect]
     Indication: MEDICAL DIET

REACTIONS (3)
  - ATRIAL FIBRILLATION [None]
  - INTERVERTEBRAL DISC PROTRUSION [None]
  - SURGERY [None]
